FAERS Safety Report 5611074-4 (Version None)
Quarter: 2008Q1

REPORT INFORMATION
  Report Type: 
  Country: None (occurrence: None)
  Receive Date: 20080201
  Receipt Date: 20080123
  Transmission Date: 20080703
  Serious: Yes (Death, Hospitalization, Other)
  Sender: FDA-Public Use
  Company Number: GB-AVENTIS-200717530GDDC

PATIENT
  Age: 53 Year
  Sex: Male

DRUGS (10)
  1. LEVOFLOXACIN [Suspect]
     Dosage: DOSE: UNK
  2. METRONIDAZOLE HCL [Suspect]
     Dosage: DOSE: UNK
  3. PARACETAMOL [Suspect]
     Dosage: DOSE: UNK
  4. AMOXICILLIN [Suspect]
     Dosage: DOSE: UNK
  5. CLAVULANATE POTASSIUM [Suspect]
     Dosage: DOSE: UNK
  6. GENTAMICIN [Suspect]
  7. VANCOMYCIN [Suspect]
     Dosage: DOSE: UNK
  8. DICLOFENAC [Concomitant]
     Dosage: DOSE: UNK
  9. METOCLOPRAMIDE [Concomitant]
     Dosage: DOSE: UNK
  10. OMEPRAZOLE [Concomitant]
     Dosage: DOSE: UNK

REACTIONS (2)
  - METABOLIC ACIDOSIS [None]
  - MYOCARDIAL INFARCTION [None]
